FAERS Safety Report 8816557 (Version 1)
Quarter: 2012Q4

REPORT INFORMATION
  Report Type: Spontaneous
  Country: US (occurrence: None)
  Receive Date: 20121001
  Receipt Date: 20121001
  Transmission Date: 20130627
  Serious: No
  Sender: FDA-Public Use
  Company Number: None

PATIENT
  Sex: Female
  Weight: 1021.05 kg

DRUGS (1)
  1. LEVOTHYROXINE [Suspect]
     Indication: HYPOTHYROID
     Dosage: Levothyroxine 200mcg daily oral
     Route: 048
     Dates: start: 2010

REACTIONS (3)
  - Dizziness [None]
  - Palpitations [None]
  - Thyroid function test abnormal [None]
